FAERS Safety Report 16359772 (Version 2)
Quarter: 2023Q4

REPORT INFORMATION
  Report Type: Spontaneous
  Country: PL (occurrence: PL)
  Receive Date: 20190528
  Receipt Date: 20231210
  Transmission Date: 20240109
  Serious: Yes (Life-Threatening, Other)
  Sender: FDA-Public Use
  Company Number: PL-AUROBINDO-AUR-APL-2019-029556

PATIENT
  Age: 68 Year
  Sex: Male

DRUGS (7)
  1. ATORVASTATIN [Suspect]
     Active Substance: ATORVASTATIN
     Indication: Cardiovascular event prophylaxis
     Dosage: 1 X 40 MG/DAY
     Route: 065
  2. BISOPROLOL [Suspect]
     Active Substance: BISOPROLOL\BISOPROLOL FUMARATE
     Indication: Cardiovascular event prophylaxis
     Dosage: 1 X 2.5 MG/DAY
     Route: 065
  3. VALSARTAN [Suspect]
     Active Substance: VALSARTAN
     Indication: Cardiovascular event prophylaxis
     Dosage: 1 X 80 MG/DAY
     Route: 065
  4. TICAGRELOR [Suspect]
     Active Substance: TICAGRELOR
     Indication: Cardiovascular event prophylaxis
     Dosage: 2 X 90 MG/DAY
     Route: 048
  5. ASPIRIN [Suspect]
     Active Substance: ASPIRIN
     Indication: Cardiovascular event prophylaxis
     Dosage: 1 X 75 MG/DAY
     Route: 065
  6. THEOPHYLLINE [Suspect]
     Active Substance: THEOPHYLLINE
     Indication: Cardiovascular event prophylaxis
     Dosage: 2 X 300 MG/DAY
     Route: 065
  7. GLICLAZIDE [Suspect]
     Active Substance: GLICLAZIDE
     Indication: Cardiovascular event prophylaxis
     Dosage: 1 X 60 MG/DAY, SR
     Route: 065

REACTIONS (5)
  - Chest pain [Unknown]
  - Blood glucose increased [Unknown]
  - Blood pressure increased [Recovered/Resolved]
  - Lipid metabolism disorder [Recovered/Resolved]
  - Intentional dose omission [Unknown]

NARRATIVE: CASE EVENT DATE: 20180101
